FAERS Safety Report 4344825-X (Version None)
Quarter: 2004Q2

REPORT INFORMATION
  Report Type: 
  Country: None (occurrence: None)
  Receive Date: 20040423
  Receipt Date: 20040413
  Transmission Date: 20050107
  Serious: Yes (Death, Life-Threatening, Hospitalization)
  Sender: FDA-Public Use
  Company Number: GR-BRISTOL-MYERS SQUIBB COMPANY-12557583

PATIENT
  Age: 62 Year
  Sex: Female

DRUGS (1)
  1. HYDROXYUREA [Suspect]
     Indication: CHRONIC MYELOID LEUKAEMIA

REACTIONS (3)
  - BEHCET'S SYNDROME [None]
  - BLAST CRISIS IN MYELOGENOUS LEUKAEMIA [None]
  - SEPSIS [None]
